FAERS Safety Report 5944341-5 (Version None)
Quarter: 2008Q4

REPORT INFORMATION
  Report Type: 
  Country: None (occurrence: None)
  Receive Date: 20081105
  Receipt Date: 20081029
  Transmission Date: 20090506
  Serious: Yes (Other)
  Sender: FDA-Public Use
  Company Number: 08H-163-0315122-00

PATIENT
  Age: 13 Year
  Sex: Male

DRUGS (6)
  1. PROPOFOL [Suspect]
     Indication: INDUCTION OF ANAESTHESIA
     Dosage: INTRAVENOUS; 100-200 UG/KG/MIN
     Route: 042
  2. BROMOCRIPTINE MESYLATE [Concomitant]
  3. LEVOTHYROXINE SODIUM [Concomitant]
  4. VECURONIUM BROMIDE [Concomitant]
  5. REMIFENTANIL (REMIFENTANIL) [Concomitant]
  6. SODIUM CHLORIDE [Concomitant]

REACTIONS (1)
  - DIABETES INSIPIDUS [None]
